FAERS Safety Report 8483805-X (Version None)
Quarter: 2012Q3

REPORT INFORMATION
  Report Type: 
  Country: None (occurrence: None)
  Receive Date: 20120703
  Receipt Date: 20120625
  Transmission Date: 20120928
  Serious: No
  Sender: FDA-Public Use
  Company Number: US-BIOGENIDEC-2012BI022837

PATIENT
  Age: 41 Year
  Sex: Female

DRUGS (4)
  1. TYSABRI [Suspect]
     Indication: MULTIPLE SCLEROSIS
     Route: 042
     Dates: start: 20101026, end: 20120119
  2. PAIN MEDICINE NOS [Concomitant]
     Indication: PAIN
  3. MACROBID [Concomitant]
     Indication: PROPHYLAXIS URINARY TRACT INFECTION
  4. BACLOFEN [Concomitant]
     Indication: MUSCLE SPASTICITY

REACTIONS (4)
  - ASTHENIA [None]
  - CYSTITIS [None]
  - MENTAL STATUS CHANGES [None]
  - DYSURIA [None]
